FAERS Safety Report 4788311-1 (Version None)
Quarter: 2005Q4

REPORT INFORMATION
  Report Type: 
  Country: None (occurrence: None)
  Receive Date: 20051005
  Receipt Date: 20050926
  Transmission Date: 20060501
  Serious: Yes (Death)
  Sender: FDA-Public Use
  Company Number: JP-JNJFOC-20040103395

PATIENT
  Sex: Male
  Weight: 50.9 kg

DRUGS (11)
  1. REMICADE [Suspect]
     Route: 041
  2. REMICADE [Suspect]
     Indication: CROHN'S DISEASE
     Route: 041
  3. PREDONINE [Concomitant]
     Indication: CROHN'S DISEASE
     Route: 048
  4. PREDONINE [Concomitant]
     Route: 042
  5. SOLU-MEDROL [Concomitant]
     Indication: CROHN'S DISEASE
     Route: 042
  6. STERONEMA [Concomitant]
     Indication: CROHN'S DISEASE
     Route: 054
  7. IMURAN [Concomitant]
     Indication: CROHN'S DISEASE
     Route: 048
  8. FLAGYL [Concomitant]
     Indication: CROHN'S DISEASE
     Route: 048
  9. PENTASA [Concomitant]
     Indication: CROHN'S DISEASE
     Route: 048
  10. FRAGILE [Concomitant]
     Route: 048
  11. ENTERAL NUTRITION [Concomitant]

REACTIONS (1)
  - CROHN'S DISEASE [None]
